FAERS Safety Report 24287656 (Version 1)
Quarter: 2024Q3

REPORT INFORMATION
  Report Type: Spontaneous
  Country: US (occurrence: US)
  Receive Date: 20240905
  Receipt Date: 20240905
  Transmission Date: 20241016
  Serious: No
  Sender: JOHNSON AND JOHNSON
  Company Number: US-JNJFOC-20240880399

PATIENT
  Sex: Male

DRUGS (2)
  1. ERLEADA [Suspect]
     Active Substance: APALUTAMIDE
     Indication: Product used for unknown indication
     Route: 048
  2. CAMCEVI [Concomitant]
     Active Substance: LEUPROLIDE MESYLATE
     Indication: Product used for unknown indication

REACTIONS (2)
  - Rash [Recovering/Resolving]
  - Arthralgia [Recovering/Resolving]
